FAERS Safety Report 15347891 (Version 1)
Quarter: 2018Q3

REPORT INFORMATION
  Report Type: Spontaneous
  Country: US (occurrence: US)
  Receive Date: 20180829
  Receipt Date: 20180829
  Transmission Date: 20181010
  Serious: Yes (Life-Threatening, Disabling)
  Sender: FDA-Public Use
  Company Number: None

PATIENT
  Age: 26 Year
  Sex: Female
  Weight: 58.5 kg

DRUGS (2)
  1. DULOXETINE HCL [Suspect]
     Active Substance: DULOXETINE HYDROCHLORIDE
     Indication: ANXIETY
     Dosage: ?          QUANTITY:2 CAPSULE(S);?
     Route: 048
     Dates: start: 20180723, end: 20180811
  2. ATIVAN [Concomitant]
     Active Substance: LORAZEPAM

REACTIONS (10)
  - Insomnia [None]
  - Feeling abnormal [None]
  - Vision blurred [None]
  - Anxiety [None]
  - Akathisia [None]
  - Seizure [None]
  - Alcoholism [None]
  - Depression [None]
  - Pain [None]
  - Withdrawal syndrome [None]

NARRATIVE: CASE EVENT DATE: 20180811
